FAERS Safety Report 15876789 (Version 6)
Quarter: 2020Q2

REPORT INFORMATION
  Report Type: Report from Study
  Country: None (occurrence: GB)
  Receive Date: 20190127
  Receipt Date: 20200424
  Transmission Date: 20200713
  Serious: Yes (Hospitalization)
  Sender: FDA-Public Use
  Company Number: GB-ABBVIE-18P-167-2594655-00

PATIENT
  Age: 25 Year
  Sex: Female
  Weight: 69 kg

DRUGS (2)
  1. AZATHIOPRINE. [Suspect]
     Active Substance: AZATHIOPRINE
     Indication: COLITIS ULCERATIVE
     Route: 048
     Dates: start: 20170626
  2. HUMIRA [Suspect]
     Active Substance: ADALIMUMAB
     Indication: COLITIS ULCERATIVE
     Route: 058
     Dates: start: 20161106, end: 201810

REACTIONS (5)
  - Live birth [Unknown]
  - Maternal exposure during pregnancy [Unknown]
  - Polyhydramnios [Recovered/Resolved]
  - Cholestasis of pregnancy [Recovered/Resolved]
  - Premature labour [Recovered/Resolved]

NARRATIVE: CASE EVENT DATE: 2018
